FAERS Safety Report 10223187 (Version 2)
Quarter: 2015Q1

REPORT INFORMATION
  Report Type: Spontaneous
  Country: US (occurrence: None)
  Receive Date: 20140605
  Receipt Date: 20150212
  Transmission Date: 20150720
  Serious: Yes (Hospitalization)
  Sender: FDA-Public Use
  Company Number: UNT-2014-001150

PATIENT
  Age: 62 Year
  Sex: Female
  Weight: 96 kg

DRUGS (2)
  1. REMODULIN [Suspect]
     Active Substance: TREPROSTINIL
     Indication: COR PULMONALE CHRONIC
     Route: 042
     Dates: start: 20131028
  2. REMODULIN [Suspect]
     Active Substance: TREPROSTINIL
     Indication: PULMONARY ARTERIAL HYPERTENSION
     Route: 042
     Dates: start: 20131028

REACTIONS (9)
  - Blood pressure increased [None]
  - Device related infection [None]
  - Asthenia [None]
  - Platelet count decreased [None]
  - Dyspnoea [None]
  - Hepatic cirrhosis [None]
  - Device related sepsis [None]
  - Blood glucose increased [None]
  - Hypertension [None]

NARRATIVE: CASE EVENT DATE: 20140518
